FAERS Safety Report 20821122 (Version 2)
Quarter: 2022Q2

REPORT INFORMATION
  Report Type: Spontaneous
  Country: US (occurrence: US)
  Receive Date: 20220512
  Receipt Date: 20220517
  Transmission Date: 20220721
  Serious: No
  Sender: FDA-Public Use
  Company Number: US-PFIZER INC-202200248658

PATIENT
  Age: 60 Year
  Sex: Female

DRUGS (5)
  1. XELJANZ XR [Suspect]
     Active Substance: TOFACITINIB CITRATE
     Dosage: 11 MG, 1X/DAY (11MG PER DAY)
     Route: 048
     Dates: start: 20220110, end: 2022
  2. CELECOXIB [Concomitant]
     Active Substance: CELECOXIB
     Dosage: UNK
  3. PRILOSEC [Concomitant]
     Active Substance: OMEPRAZOLE MAGNESIUM
     Dosage: UNK
  4. HERBALS\TURMERIC [Concomitant]
     Active Substance: HERBALS\TURMERIC
     Dosage: UNK
  5. BIFIDOBACTERIUM ANIMALIS LACTIS [Concomitant]
     Active Substance: BIFIDOBACTERIUM ANIMALIS LACTIS
     Dosage: UNK

REACTIONS (4)
  - Drug ineffective [Unknown]
  - Product dose omission issue [Unknown]
  - Symptom recurrence [Unknown]
  - Pain [Unknown]

NARRATIVE: CASE EVENT DATE: 20220101
